FAERS Safety Report 15022514 (Version 1)
Quarter: 2018Q2

REPORT INFORMATION
  Report Type: Spontaneous
  Country: GB (occurrence: GB)
  Receive Date: 20180618
  Receipt Date: 20180618
  Transmission Date: 20180711
  Serious: Yes (Hospitalization)
  Sender: FDA-Public Use
  Company Number: GB-TEVA-2018-GB-909234

PATIENT
  Age: 66 Year
  Sex: Male

DRUGS (10)
  1. LEFLUNOMIDE. [Concomitant]
     Active Substance: LEFLUNOMIDE
     Dosage: 10 MILLIGRAM DAILY; AS DIRECTED
  2. LANSOPRAZOLE. [Concomitant]
     Active Substance: LANSOPRAZOLE
     Dosage: 60 MILLIGRAM DAILY;
  3. ACETYLSALICYLIC ACID [Concomitant]
     Active Substance: ASPIRIN
     Dosage: 75 MILLIGRAM DAILY;
  4. AMLODIPINE [Concomitant]
     Active Substance: AMLODIPINE BESYLATE
     Dosage: 10 MILLIGRAM DAILY;
  5. ATORVASTATIN [Concomitant]
     Active Substance: ATORVASTATIN
     Dosage: 20 MILLIGRAM DAILY;
  6. PREDNISOLONE. [Concomitant]
     Active Substance: PREDNISOLONE
     Dosage: TAKE 3 EACH MORN FOR 2 WEEKS, THEN 2 FOR 2 WEEKS THEN 1, THEN STOP.
  7. LEVOTHYROXINE SODIUM. [Concomitant]
     Active Substance: LEVOTHYROXINE SODIUM
     Dosage: 100 MICROGRAM DAILY;
  8. METHOTREXATE. [Suspect]
     Active Substance: METHOTREXATE
     Indication: RHEUMATOID ARTHRITIS
     Dosage: USUALLY TAKES THURSDAY BUT LAST HAD LAST FRIDAY.
  9. SILDENAFIL. [Concomitant]
     Active Substance: SILDENAFIL
  10. FOLIC ACID. [Concomitant]
     Active Substance: FOLIC ACID
     Dosage: USUALLY TAKES ON A SATURDAY BUT LAST HAD ON SUNDAY.

REACTIONS (2)
  - Pulmonary toxicity [Recovered/Resolved]
  - Sepsis [Unknown]
